FAERS Safety Report 17074838 (Version 3)
Quarter: 2020Q1

REPORT INFORMATION
  Report Type: Report from Study
  Country: CA (occurrence: CA)
  Receive Date: 20191126
  Receipt Date: 20200121
  Transmission Date: 20200409
  Serious: Yes (Hospitalization, Other)
  Sender: FDA-Public Use
  Company Number: CA-GLAXOSMITHKLINE-CA2019AMR199986

PATIENT
  Sex: Female

DRUGS (2)
  1. MEPOLIZUMAB [Suspect]
     Active Substance: MEPOLIZUMAB
     Dosage: 100 MG, Z(MONTHLY)
     Route: 042
  2. MEPOLIZUMAB [Suspect]
     Active Substance: MEPOLIZUMAB
     Indication: ASTHMA
     Dosage: 100 MG, Z(MONTHLY)
     Route: 042
     Dates: start: 20170712

REACTIONS (8)
  - Infection [Unknown]
  - Pneumonia [Unknown]
  - Sputum discoloured [Unknown]
  - Blood electrolytes increased [Unknown]
  - Bronchitis [Unknown]
  - Tracheitis [Unknown]
  - Secretion discharge [Unknown]
  - Blood creatinine increased [Unknown]
